FAERS Safety Report 14003053 (Version 2)
Quarter: 2017Q4

REPORT INFORMATION
  Report Type: Spontaneous
  Country: US (occurrence: US)
  Receive Date: 20170922
  Receipt Date: 20171024
  Transmission Date: 20180321
  Serious: Yes (Hospitalization, Other)
  Sender: FDA-Public Use
  Company Number: US-GILEAD-2017-0293805

PATIENT
  Age: 45 Year
  Sex: Male
  Weight: 79.82 kg

DRUGS (3)
  1. DAPSONE. [Concomitant]
     Active Substance: DAPSONE
     Indication: ANTIFUNGAL PROPHYLAXIS
     Dosage: 100 MG, UNK
     Route: 048
     Dates: start: 20170803, end: 20170907
  2. ODEFSEY [Suspect]
     Active Substance: EMTRICITABINE\RILPIVIRINE HYDROCHLORIDE\TENOFOVIR ALAFENAMIDE FUMARATE
     Indication: HIV INFECTION
     Dosage: 1 DF, UNK
     Route: 048
     Dates: start: 20170817, end: 20170915
  3. ACYCLOVIR                          /00587301/ [Concomitant]
     Active Substance: ACYCLOVIR
     Indication: HERPES SIMPLEX
     Dosage: 800 MG, TID
     Route: 048
     Dates: start: 20170727

REACTIONS (2)
  - Drug eruption [Recovered/Resolved]
  - Immune reconstitution inflammatory syndrome [Recovering/Resolving]

NARRATIVE: CASE EVENT DATE: 201709
